FAERS Safety Report 24789468 (Version 1)
Quarter: 2024Q4

REPORT INFORMATION
  Report Type: Spontaneous
  Country: FR (occurrence: FR)
  Receive Date: 20241230
  Receipt Date: 20241230
  Transmission Date: 20250115
  Serious: Yes (Life-Threatening, Hospitalization)
  Sender: MYLAN
  Company Number: None

PATIENT
  Age: 65 Year
  Sex: Male
  Weight: 75 kg

DRUGS (7)
  1. PROPOFOL [Suspect]
     Active Substance: PROPOFOL
     Indication: Hernia repair
     Dosage: 200 MILLIGRAM
     Route: 042
     Dates: start: 20241204, end: 20241204
  2. DEXAMETHASONE [Suspect]
     Active Substance: DEXAMETHASONE
     Indication: Hernia repair
     Dosage: 8 MILLIGRAM
     Route: 042
     Dates: start: 20241204, end: 20241204
  3. SUFENTANIL [Suspect]
     Active Substance: SUFENTANIL
     Indication: Hernia repair
     Dosage: 10 MICROGRAM
     Route: 042
     Dates: start: 20241204, end: 20241204
  4. CEFAZOLIN [Suspect]
     Active Substance: CEFAZOLIN
     Indication: Infection prophylaxis
     Dosage: 2 GRAM
     Route: 042
     Dates: start: 20241204, end: 20241204
  5. KETAMINE [Suspect]
     Active Substance: KETAMINE
     Indication: Hernia repair
     Dosage: 20 MILLIGRAM
     Route: 042
     Dates: start: 20241204, end: 20241204
  6. ROCURONIUM BROMIDE [Suspect]
     Active Substance: ROCURONIUM BROMIDE
     Indication: Hernia repair
     Dosage: 40 MILLIGRAM
     Route: 042
     Dates: start: 20241204, end: 20241204
  7. AMLODIPINE [Concomitant]
     Active Substance: AMLODIPINE BESYLATE
     Indication: Hypertension
     Dosage: 1 DOSAGE FORM
     Route: 048

REACTIONS (1)
  - Anaphylactic shock [Recovered/Resolved]

NARRATIVE: CASE EVENT DATE: 20241204
